FAERS Safety Report 14421054 (Version 2)
Quarter: 2018Q1

REPORT INFORMATION
  Report Type: Spontaneous
  Country: DE (occurrence: DE)
  Receive Date: 20180122
  Receipt Date: 20180122
  Transmission Date: 20180509
  Serious: Yes (Other)
  Sender: FDA-Public Use
  Company Number: PHHY2017DE199263

PATIENT
  Age: 10 Year
  Sex: Female

DRUGS (5)
  1. OMEPRAZOL RATIOPHARM [Concomitant]
     Active Substance: OMEPRAZOLE
     Indication: PRODUCT USED FOR UNKNOWN INDICATION
     Route: 065
  2. PREDNISOLON [Suspect]
     Active Substance: PREDNISOLONE
     Indication: LANGERHANS^ CELL HISTIOCYTOSIS
     Dosage: INITIAL: 52 MG/DAY FOR 4 WEEKS; THEN: 25 MG/DAY FOR 1 WEEK AND 12 MG/DAY FOR 1 WEEK
     Route: 065
     Dates: start: 20171011, end: 20171122
  3. COTRIM FORTE-RATIOPHARM [Concomitant]
     Active Substance: SULFAMETHOXAZOLE\TRIMETHOPRIM
     Indication: PRODUCT USED FOR UNKNOWN INDICATION
     Route: 065
  4. AMPHO MORONAL [Concomitant]
     Active Substance: AMPHOTERICIN B
     Indication: PRODUCT USED FOR UNKNOWN INDICATION
     Route: 065
  5. VINBLASTINE [Concomitant]
     Active Substance: VINBLASTINE
     Indication: LANGERHANS^ CELL HISTIOCYTOSIS
     Route: 065

REACTIONS (4)
  - Confusional state [Recovered/Resolved]
  - Lethargy [Recovered/Resolved]
  - Hallucination [Recovered/Resolved]
  - Disorientation [Recovered/Resolved]

NARRATIVE: CASE EVENT DATE: 20171123
